FAERS Safety Report 18545912 (Version 1)
Quarter: 2020Q4

REPORT INFORMATION
  Report Type: Spontaneous
  Country: BR (occurrence: BR)
  Receive Date: 20201125
  Receipt Date: 20201125
  Transmission Date: 20210114
  Serious: Yes (Life-Threatening)
  Sender: FDA-Public Use
  Company Number: BR-DRREDDYS-GPV/BRA/20/0129525

PATIENT
  Age: 71 Year
  Sex: Male

DRUGS (7)
  1. WINDUZA [Suspect]
     Active Substance: AZACITIDINE
     Indication: MYELODYSPLASTIC SYNDROME
     Dosage: C14 (D1-D7) 56,25MG/M2 (75 PERCENT DOSE)
     Route: 058
     Dates: start: 20200415
  2. WINDUZA [Suspect]
     Active Substance: AZACITIDINE
     Dosage: C16 (D1-D7) 56,25MG/M2 (75 PERCENT DOSE)
     Route: 058
     Dates: start: 20200624
  3. WINDUZA [Suspect]
     Active Substance: AZACITIDINE
     Dosage: C17 (D1-D7) 56,25MG/M2 (75 PERCENT DOSE)
     Route: 058
     Dates: start: 20200805
  4. METFORMINA [Concomitant]
     Active Substance: METFORMIN HYDROCHLORIDE
     Indication: PRODUCT USED FOR UNKNOWN INDICATION
  5. WINDUZA [Suspect]
     Active Substance: AZACITIDINE
     Dosage: C15 (D1-D7) 56,25MG/M2 (75 PERCENT DOSE)
     Route: 058
     Dates: start: 20200513
  6. ESOMEPRAZOL E ALOGLIPTINA + PIOGLITAZONA [Concomitant]
     Indication: PRODUCT USED FOR UNKNOWN INDICATION
  7. WINDUZA [Suspect]
     Active Substance: AZACITIDINE
     Dosage: C18 (D1-D7) 56,25MG/M2 (75 PERCENT DOSE)
     Route: 058
     Dates: start: 20200916, end: 20200924

REACTIONS (1)
  - Therapeutic product ineffective [Not Recovered/Not Resolved]

NARRATIVE: CASE EVENT DATE: 20201014
